FAERS Safety Report 23504040 (Version 1)
Quarter: 2024Q1

REPORT INFORMATION
  Report Type: Spontaneous
  Country: CA (occurrence: CA)
  Receive Date: 20240209
  Receipt Date: 20240209
  Transmission Date: 20240410
  Serious: Yes (Other)
  Sender: FDA-Public Use
  Company Number: CA-JNJFOC-20240218805

PATIENT
  Age: 37 Year
  Sex: Male

DRUGS (4)
  1. CETIRIZINE HYDROCHLORIDE [Suspect]
     Active Substance: CETIRIZINE HYDROCHLORIDE
     Indication: Skin plaque
     Route: 065
  2. CETIRIZINE HYDROCHLORIDE [Suspect]
     Active Substance: CETIRIZINE HYDROCHLORIDE
     Indication: Pruritus
  3. HYDROXYZINE [Suspect]
     Active Substance: HYDROXYZINE HYDROCHLORIDE
     Indication: Chronic spontaneous urticaria
     Route: 065
  4. METHACHOLINE CHLORIDE [Concomitant]
     Active Substance: METHACHOLINE CHLORIDE
     Indication: Product used for unknown indication
     Route: 065

REACTIONS (4)
  - Benign prostatic hyperplasia [Unknown]
  - Chest discomfort [Unknown]
  - Angioedema [Unknown]
  - Urticaria [Unknown]
